FAERS Safety Report 6137768-2 (Version None)
Quarter: 2009Q1

REPORT INFORMATION
  Report Type: 
  Country: None (occurrence: None)
  Receive Date: 20090326
  Receipt Date: 20090311
  Transmission Date: 20090719
  Serious: Yes (Hospitalization, Other)
  Sender: FDA-Public Use
  Company Number: 2009AL001463

PATIENT
  Age: 56 Year
  Sex: Male

DRUGS (5)
  1. DICLOFENAC SODIUM [Suspect]
     Indication: ANALGESIA
     Dosage: 100 MG; REC
     Route: 054
     Dates: start: 20090203, end: 20090207
  2. RIVAROXABAN [Concomitant]
  3. HORMONE REPLACEMENT THERAPY [Concomitant]
  4. BENDROFLUMETHIAZIDE [Concomitant]
  5. GLUCOSAMINE [Concomitant]

REACTIONS (2)
  - PLATELET COUNT INCREASED [None]
  - WOUND SECRETION [None]
